FAERS Safety Report 6076665-8 (Version None)
Quarter: 2009Q1

REPORT INFORMATION
  Report Type: 
  Country: None (occurrence: None)
  Receive Date: 20090213
  Receipt Date: 20090203
  Transmission Date: 20090719
  Serious: Yes (Other)
  Sender: FDA-Public Use
  Company Number: PHBS2009DE00742

PATIENT
  Age: 71 Year
  Sex: Female

DRUGS (1)
  1. ZOLEDRONIC ACID [Suspect]
     Dosage: 11 INFUSIONS (44 MG CUMULATIVE DOSIS

REACTIONS (3)
  - DENTAL PROSTHESIS PLACEMENT [None]
  - JAW OPERATION [None]
  - OSTEONECROSIS [None]
